FAERS Safety Report 5077973-X (Version None)
Quarter: 2006Q3

REPORT INFORMATION
  Report Type: 
  Country: None (occurrence: None)
  Receive Date: 20060714
  Receipt Date: 20060222
  Transmission Date: 20061208
  Serious: Yes (Other)
  Sender: FDA-Public Use
  Company Number: 25151

PATIENT
  Weight: 5 kg

DRUGS (1)
  1. VECURONIUM BROMIDE [Suspect]

REACTIONS (1)
  - DRUG INEFFECTIVE [None]
